FAERS Safety Report 8804928 (Version 1)
Quarter: 2012Q4

REPORT INFORMATION
  Report Type: 
  Country: CN (occurrence: CN)
  Receive Date: 20120924
  Receipt Date: 20120924
  Transmission Date: 20130627
  Serious: Yes (Life-Threatening, Other)
  Sender: FDA-Public Use
  Company Number: CN-PFIZER INC-2012233739

PATIENT
  Age: 58 Year
  Sex: Female

DRUGS (1)
  1. AMIODARONE HCL [Suspect]
     Indication: ATRIAL FIBRILLATION
     Dosage: 200 mg daily
     Route: 048
     Dates: start: 20110624, end: 20111023

REACTIONS (9)
  - Ventricular tachycardia [Recovering/Resolving]
  - Electrocardiogram QT prolonged [Recovering/Resolving]
  - Loss of consciousness [Unknown]
  - Electrocardiogram QRS complex prolonged [Recovering/Resolving]
  - Muscle twitching [Unknown]
  - Cyanosis [Unknown]
  - Fall [Unknown]
  - Mouth breathing [Unknown]
  - Mydriasis [Unknown]
